FAERS Safety Report 6565303-3 (Version None)
Quarter: 2010Q1

REPORT INFORMATION
  Report Type: 
  Country: None (occurrence: None)
  Receive Date: 20100201
  Receipt Date: 20100127
  Transmission Date: 20100710
  Serious: No
  Sender: FDA-Public Use
  Company Number: CH-ROCHE-682152

PATIENT
  Age: 29 Year
  Sex: Female

DRUGS (2)
  1. ROACCUTAN [Suspect]
     Indication: DRUG USE FOR UNKNOWN INDICATION
     Route: 048
     Dates: start: 20090501, end: 20090901
  2. ROACCUTAN [Suspect]
     Route: 048
     Dates: start: 20091103, end: 20091103

REACTIONS (1)
  - DRUG EXPOSURE DURING PREGNANCY [None]
